FAERS Safety Report 5962457-4 (Version None)
Quarter: 2008Q4

REPORT INFORMATION
  Report Type: 
  Country: None (occurrence: None)
  Receive Date: 20081121
  Receipt Date: 20081112
  Transmission Date: 20090506
  Serious: Yes (Other)
  Sender: FDA-Public Use
  Company Number: US-PFIZER INC-2008045928

PATIENT
  Sex: Female
  Weight: 66.818 kg

DRUGS (6)
  1. LIPITOR [Suspect]
     Indication: BLOOD CHOLESTEROL INCREASED
     Route: 048
  2. MULTI-VITAMINS [Concomitant]
  3. ADVIL [Concomitant]
  4. FOLIC ACID [Concomitant]
  5. EFFEXOR [Concomitant]
  6. THYROID TAB [Concomitant]

REACTIONS (1)
  - HEPATITIS B [None]
